FAERS Safety Report 9444541 (Version 2)
Quarter: 2013Q3

REPORT INFORMATION
  Report Type: Spontaneous
  Country: US (occurrence: US)
  Receive Date: 20130807
  Receipt Date: 20130827
  Transmission Date: 20140515
  Serious: No
  Sender: FDA-Public Use
  Company Number: US-PFIZER INC-2013224957

PATIENT
  Age: 69 Year
  Sex: Female

DRUGS (9)
  1. PREMARIN [Suspect]
     Dosage: UNK , 2X/WEEK
  2. ATIVAN [Concomitant]
     Dosage: 1 DF (1 TABLET), 3X/DAY (AS NEEDED)
  3. HYDROCORTISONE [Concomitant]
     Dosage: 25 MG, 2X/DAY (AS NEEDED)
  4. LIDOCAINE [Concomitant]
     Dosage: 5 %, 2 TO 4 TIMES A DAY AS NEEDED
     Route: 061
  5. CHILDREN^S DIMETAPP COLD + COUGH [Concomitant]
     Dosage: UNK, AS NEEDED
  6. SYSTANE [Concomitant]
     Dosage: UNK, AS NEEDED
  7. CHILDRENS TYLENOL [Concomitant]
     Dosage: UNK, AS NEEDED
  8. GLYCERIN [Concomitant]
     Indication: LAXATIVE SUPPORTIVE CARE
     Dosage: UNK, AS NEEDED
     Route: 054
  9. PHILLIPS [Suspect]
     Dosage: UNK, 1X/DAY

REACTIONS (2)
  - Irritable bowel syndrome [Unknown]
  - Rosacea [Unknown]
